FAERS Safety Report 8390323-6 (Version None)
Quarter: 2012Q2

REPORT INFORMATION
  Report Type: 
  Country: None (occurrence: None)
  Receive Date: 20120529
  Receipt Date: 20120523
  Transmission Date: 20120825
  Serious: Yes (Other)
  Sender: FDA-Public Use
  Company Number: DE-PFIZER INC-2012099114

PATIENT
  Age: 63 Year
  Sex: Male
  Weight: 110 kg

DRUGS (2)
  1. MINOXIDIL [Suspect]
     Indication: NEPHRITIS AUTOIMMUNE
  2. MINOXIDIL [Suspect]
     Indication: RENAL HYPERTENSION
     Dosage: HALF A TABLET, TWICE DAILY
     Dates: start: 20100601

REACTIONS (1)
  - PROSTATIC SPECIFIC ANTIGEN INCREASED [None]
